FAERS Safety Report 16476327 (Version 5)
Quarter: 2020Q3

REPORT INFORMATION
  Report Type: Spontaneous
  Country: IT (occurrence: IT)
  Receive Date: 20190626
  Receipt Date: 20200922
  Transmission Date: 20201102
  Serious: Yes (Hospitalization, Other)
  Sender: FDA-Public Use
  Company Number: IT-AUROBINDO-AUR-APL-2019-035898

PATIENT
  Age: 63 Year
  Sex: Female

DRUGS (1)
  1. METFORMIN [Suspect]
     Active Substance: METFORMIN HYDROCHLORIDE
     Indication: TYPE 2 DIABETES MELLITUS
     Dosage: UNK
     Route: 065

REACTIONS (6)
  - Leukocytosis [Recovered/Resolved]
  - Macrocytosis [Recovered/Resolved]
  - Drug interaction [Unknown]
  - Renal impairment [Recovered/Resolved]
  - Lactic acidosis [Recovered/Resolved]
  - Alcohol interaction [Unknown]
